FAERS Safety Report 10480827 (Version 1)
Quarter: 2014Q3

REPORT INFORMATION
  Report Type: Spontaneous
  Country: US (occurrence: None)
  Receive Date: 20140908
  Receipt Date: 20140908
  Transmission Date: 20150326
  Serious: Yes (Hospitalization)
  Sender: FDA-Public Use
  Company Number: 388825

PATIENT
  Age: 44 Year
  Sex: Female
  Weight: 77.6 kg

DRUGS (4)
  1. VICTOZA [Suspect]
     Active Substance: LIRAGLUTIDE
     Indication: TYPE 2 DIABETES MELLITUS
     Route: 058
     Dates: start: 20100816, end: 20120618
  2. RAMIPRIL (RAMIPRIL) [Concomitant]
     Active Substance: RAMIPRIL
  3. METFORMIN ER (METFORMIN HYDROCHLORIDE) [Concomitant]
  4. GLIPIZIDE (GLIPIZIDE) [Concomitant]
     Active Substance: GLIPIZIDE

REACTIONS (3)
  - Renal cyst [None]
  - Pancreatitis [None]
  - Cholelithiasis [None]

NARRATIVE: CASE EVENT DATE: 20130731
